FAERS Safety Report 21200572 (Version 2)
Quarter: 2022Q3

REPORT INFORMATION
  Report Type: Spontaneous
  Country: US (occurrence: US)
  Receive Date: 20220811
  Receipt Date: 20220818
  Transmission Date: 20221027
  Serious: Yes (Other)
  Sender: FDA-Public Use
  Company Number: US-MLMSERVICE-20220728-3702226-1

PATIENT
  Age: 53 Year
  Sex: Male

DRUGS (2)
  1. SULFAMETHOXAZOLE\TRIMETHOPRIM [Suspect]
     Active Substance: SULFAMETHOXAZOLE\TRIMETHOPRIM
     Indication: Staphylococcal infection
     Dosage: UNK
  2. SULFAMETHOXAZOLE\TRIMETHOPRIM [Suspect]
     Active Substance: SULFAMETHOXAZOLE\TRIMETHOPRIM
     Indication: Furuncle

REACTIONS (2)
  - Acute febrile neutrophilic dermatosis [Recovered/Resolved]
  - Off label use [Unknown]
